FAERS Safety Report 7745153-2 (Version None)
Quarter: 2011Q3

REPORT INFORMATION
  Report Type: 
  Country: None (occurrence: None)
  Receive Date: 20110913
  Receipt Date: 20110906
  Transmission Date: 20111222
  Serious: Yes (Other)
  Sender: FDA-Public Use
  Company Number: US-SP-2011-03083

PATIENT
  Sex: Female

DRUGS (2)
  1. TUBERSOL [Concomitant]
     Route: 023
     Dates: start: 20110420, end: 20110420
  2. TUBERSOL [Suspect]
     Indication: TUBERCULIN TEST
     Route: 023
     Dates: start: 20110525, end: 20110525

REACTIONS (4)
  - PRURITUS [None]
  - LOCALISED OEDEMA [None]
  - ERYTHEMA [None]
  - PYREXIA [None]
